FAERS Safety Report 7490498-7 (Version None)
Quarter: 2011Q2

REPORT INFORMATION
  Report Type: 
  Country: None (occurrence: None)
  Receive Date: 20110517
  Receipt Date: 20110517
  Transmission Date: 20111010
  Serious: No
  Sender: FDA-Public Use
  Company Number: None

PATIENT
  Age: 49 Year
  Sex: Male
  Weight: 83.9154 kg

DRUGS (1)
  1. CIPROFLOXACIN [Suspect]
     Dosage: 500MG 1 EVERY 12 HOURS PO
     Route: 048
     Dates: start: 20110404, end: 20110406

REACTIONS (3)
  - IMPAIRED WORK ABILITY [None]
  - TENDONITIS [None]
  - ACTIVITIES OF DAILY LIVING IMPAIRED [None]
